FAERS Safety Report 11390651 (Version 1)
Quarter: 2015Q3

REPORT INFORMATION
  Report Type: Spontaneous
  Country: US (occurrence: US)
  Receive Date: 20150818
  Receipt Date: 20150818
  Transmission Date: 20151125
  Serious: No
  Sender: FDA-Public Use
  Company Number: US-ROCHE-1406597

PATIENT
  Age: 63 Year
  Sex: Male

DRUGS (14)
  1. PROZAC [Concomitant]
     Active Substance: FLUOXETINE HYDROCHLORIDE
  2. PEGASYS [Suspect]
     Active Substance: PEGINTERFERON ALFA-2A
     Indication: HEPATITIS C
     Route: 058
  3. AVALIDE [Concomitant]
     Active Substance: HYDROCHLOROTHIAZIDE\IRBESARTAN
  4. MILK THISTLE [Concomitant]
     Active Substance: MILK THISTLE
  5. LORAZEPAM. [Concomitant]
     Active Substance: LORAZEPAM
     Indication: INSOMNIA
  6. RIBASPHERE RIBAPAK [Concomitant]
     Active Substance: RIBAVIRIN
  7. VICTOZA [Concomitant]
     Active Substance: LIRAGLUTIDE
  8. LEVEMIR [Concomitant]
     Active Substance: INSULIN DETEMIR
  9. VIAGRA [Concomitant]
     Active Substance: SILDENAFIL CITRATE
  10. FISH OIL [Concomitant]
     Active Substance: FISH OIL
  11. SOVALDI [Concomitant]
     Active Substance: SOFOSBUVIR
  12. ASA [Concomitant]
     Active Substance: ASPIRIN
  13. PIOGLITAZONE. [Concomitant]
     Active Substance: PIOGLITAZONE
  14. METFORMIN [Concomitant]
     Active Substance: METFORMIN HYDROCHLORIDE
     Route: 065

REACTIONS (3)
  - White blood cell count decreased [Unknown]
  - Fatigue [Unknown]
  - Insomnia [Unknown]
